FAERS Safety Report 6370609-7 (Version None)
Quarter: 2009Q3

REPORT INFORMATION
  Report Type: 
  Country: None (occurrence: None)
  Receive Date: 20090923
  Receipt Date: 20090918
  Transmission Date: 20100115
  Serious: Yes (Other)
  Sender: FDA-Public Use
  Company Number: US-ELI_LILLY_AND_COMPANY-US200909004853

PATIENT
  Sex: Male
  Weight: 115.65 kg

DRUGS (16)
  1. BYETTA [Suspect]
     Dosage: 5 UG, 2/D
     Route: 058
  2. BYETTA [Suspect]
     Dosage: 10 UG, 2/D
     Route: 058
     Dates: end: 20081101
  3. BYETTA [Suspect]
     Dosage: 5 UG, 2/D
     Route: 058
     Dates: start: 20090201, end: 20090301
  4. BYETTA [Suspect]
     Dosage: 10 UG, 2/D
     Route: 058
     Dates: start: 20090301
  5. LEVEMIR [Concomitant]
     Dosage: 20 U, EACH MORNING
  6. LEVEMIR [Concomitant]
     Dosage: 37 U, EACH EVENING
  7. METFORMIN HCL [Concomitant]
     Dosage: UNK, 2/D
  8. DIOVAN [Concomitant]
     Dosage: UNK, DAILY (1/D)
  9. CARVEDILOL [Concomitant]
     Dosage: UNK, 2/D
  10. ROSUVASTATIN CALCIUM [Concomitant]
     Dosage: UNK, DAILY (1/D)
  11. PLAVIX [Concomitant]
     Dosage: UNK, DAILY (1/D)
  12. ASPIRIN [Concomitant]
     Dosage: 81 MG, DAILY (1/D)
  13. ALLOPURINOL [Concomitant]
     Dosage: UNK, DAILY (1/D)
  14. FUROSEMIDE [Concomitant]
     Dosage: UNK, DAILY (1/D)
  15. PREVACID [Concomitant]
     Dosage: UNK, DAILY (1/D)
  16. NITROGLYCERIN [Concomitant]
     Dosage: UNK, AS NEEDED

REACTIONS (2)
  - CARDIAC OPERATION [None]
  - OFF LABEL USE [None]
